FAERS Safety Report 7277902-4 (Version None)
Quarter: 2011Q1

REPORT INFORMATION
  Report Type: 
  Country: None (occurrence: None)
  Receive Date: 20110207
  Receipt Date: 20110128
  Transmission Date: 20110831
  Serious: Yes (Hospitalization, Other)
  Sender: FDA-Public Use
  Company Number: US-JNJFOC-20100806884

PATIENT
  Sex: Male

DRUGS (5)
  1. LEVAQUIN [Suspect]
     Route: 048
  2. PREDNISONE [Suspect]
     Indication: INFLAMMATION
  3. LEVAQUIN [Suspect]
     Indication: MULTIPLE ALLERGIES
     Route: 048
  4. METHYLPREDNISOLONE [Suspect]
     Indication: INFLAMMATION
     Route: 065
  5. PREDNISONE [Suspect]

REACTIONS (3)
  - TENOSYNOVITIS [None]
  - TENDON DISORDER [None]
  - TENDON RUPTURE [None]
